FAERS Safety Report 5963885-3 (Version None)
Quarter: 2008Q4

REPORT INFORMATION
  Report Type: 
  Country: None (occurrence: None)
  Receive Date: 20081124
  Receipt Date: 20081113
  Transmission Date: 20090506
  Serious: Yes (Life-Threatening)
  Sender: FDA-Public Use
  Company Number: JP-ROCHE-572119

PATIENT
  Sex: Female
  Weight: 12 kg

DRUGS (9)
  1. ROCEPHIN [Suspect]
     Indication: ORAL HERPES
     Route: 041
     Dates: start: 20080609, end: 20080609
  2. ONON [Suspect]
     Indication: ASTHMA
     Dosage: FORM: DRY SYRUP
     Route: 048
     Dates: start: 20080606, end: 20080610
  3. ANHIBA [Suspect]
     Indication: ANALGESIA
     Dosage: NOTE: 200 MG X 2/3, FORM: RECTAL SUPPOSITORY, GENERIC NAME REPORTED AS: ACETAMINOPHEN
     Route: 054
     Dates: start: 20080606, end: 20080612
  4. HOKUNALIN [Suspect]
     Indication: ASTHMA
     Dosage: ROUTE: TRANSMAMMARY, FORM: TAPE
     Route: 050
     Dates: start: 20080606, end: 20080610
  5. VALTREX [Suspect]
     Indication: ORAL HERPES
     Route: 048
     Dates: start: 20080607, end: 20080610
  6. ZOVIRAX [Suspect]
     Indication: ORAL HERPES
     Route: 041
     Dates: start: 20080610, end: 20080611
  7. ZOVIRAX [Suspect]
     Route: 041
     Dates: start: 20080612, end: 20080612
  8. FLUMARIN [Suspect]
     Indication: INFECTION PROPHYLAXIS
     Route: 041
     Dates: start: 20080612, end: 20080612
  9. NEO-MINOPHAGEN C [Suspect]
     Indication: STEVENS-JOHNSON SYNDROME
     Route: 041
     Dates: start: 20080612, end: 20080612

REACTIONS (2)
  - STEVENS-JOHNSON SYNDROME [None]
  - TOXIC EPIDERMAL NECROLYSIS [None]
